FAERS Safety Report 4915009-9 (Version None)
Quarter: 2006Q1

REPORT INFORMATION
  Report Type: 
  Country: None (occurrence: None)
  Receive Date: 20060215
  Receipt Date: 20060215
  Transmission Date: 20060701
  Serious: Yes (Hospitalization)
  Sender: FDA-Public Use
  Company Number: None

PATIENT
  Sex: Male

DRUGS (12)
  1. CYTOXAN [Suspect]
     Indication: PROSTATE CANCER
     Dosage: 763 MG IV EQ X3 DAYS
     Route: 042
     Dates: start: 20051214, end: 20051216
  2. GVAX VACCINE [Suspect]
     Indication: PROSTATE CANCER
     Dosage: 6.4 ML SQ EVERY 2 WEEKS
     Route: 058
     Dates: start: 20051220, end: 20060103
  3. GVAX VACCINE [Suspect]
  4. FLUDARABINE PHOSPHATE [Suspect]
     Indication: PROSTATE CANCER
     Dosage: 44 MG IV Q DX 3 DAYS
     Route: 042
     Dates: start: 20051214, end: 20051216
  5. PREDNISONE [Concomitant]
  6. MEGACE [Concomitant]
  7. MS CONTIN [Concomitant]
  8. DYAZIDE [Concomitant]
  9. NEURONTIN [Concomitant]
  10. POTASSIUM [Concomitant]
  11. COMPAZINE [Concomitant]
  12. XANAX [Concomitant]

REACTIONS (2)
  - CEREBROVASCULAR ACCIDENT [None]
  - PLATELET COUNT DECREASED [None]
